FAERS Safety Report 8552316-5 (Version None)
Quarter: 2012Q3

REPORT INFORMATION
  Report Type: 
  Country: None (occurrence: None)
  Receive Date: 20120723
  Receipt Date: 20120723
  Transmission Date: 20120928
  Serious: Yes (Hospitalization)
  Sender: FDA-Public Use
  Company Number: None

PATIENT
  Age: 60 Year
  Sex: Female
  Weight: 80.2867 kg

DRUGS (12)
  1. LAPATINIB [Suspect]
     Indication: BREAST CANCER
     Dosage: 1250MG PO
     Route: 048
     Dates: start: 20120312, end: 20120630
  2. EVEROLIMUS 5 MG - GLAXO-SMITH-KLINE [Suspect]
     Indication: BREAST CANCER
     Dosage: 5MG PO
     Route: 048
     Dates: start: 20120312, end: 20120630
  3. POTASSIUM CHLORIDE [Concomitant]
  4. DECADRON PHOSPHATE [Concomitant]
  5. ARMODAFINIL [Concomitant]
  6. MS CONTIN [Concomitant]
  7. MAGIC MOUTHWASH [Concomitant]
  8. LEVAQUIN [Concomitant]
  9. MORPHINE SULFATE [Concomitant]
  10. DECADRON PHOSPHATE [Concomitant]
  11. POTASSIUM CHLORIDE [Concomitant]
  12. XANAX [Concomitant]

REACTIONS (11)
  - FATIGUE [None]
  - PNEUMOTHORAX [None]
  - COUGH [None]
  - OEDEMA PERIPHERAL [None]
  - URINARY TRACT INFECTION [None]
  - ACTIVITIES OF DAILY LIVING IMPAIRED [None]
  - PLEURAL EFFUSION [None]
  - PULMONARY CONGESTION [None]
  - ATELECTASIS [None]
  - VULVOVAGINAL PRURITUS [None]
  - PAIN [None]
